FAERS Safety Report 9331342 (Version 1)
Quarter: 2013Q2

REPORT INFORMATION
  Report Type: Spontaneous
  Country: US (occurrence: US)
  Receive Date: 20130605
  Receipt Date: 20130605
  Transmission Date: 20140414
  Serious: No
  Sender: FDA-Public Use
  Company Number: US-TARO-2012P1060588

PATIENT
  Age: 8 Year
  Sex: Male
  Weight: 27.22 kg

DRUGS (1)
  1. CETIRIZINE HCL ORAL SOLUTION ALLERGY 1 MG/ML OTC [Suspect]
     Route: 048
     Dates: start: 20120930

REACTIONS (1)
  - Oropharyngeal pain [Not Recovered/Not Resolved]
